FAERS Safety Report 24603869 (Version 3)
Quarter: 2024Q4

REPORT INFORMATION
  Report Type: Report from Study
  Country: CA (occurrence: CA)
  Receive Date: 20241111
  Receipt Date: 20241204
  Transmission Date: 20250115
  Serious: Yes (Death)
  Sender: ABBVIE
  Company Number: CA-ABBVIE-5998772

PATIENT
  Age: 77 Year
  Sex: Female

DRUGS (2)
  1. RINVOQ [Suspect]
     Active Substance: UPADACITINIB
     Indication: Rheumatoid arthritis
     Dosage: FORM STRENGTH: 15 MG?END DATE: 2024
     Route: 048
     Dates: start: 20240905
  2. RINVOQ [Suspect]
     Active Substance: UPADACITINIB
     Indication: Rheumatoid arthritis
     Dosage: FORM STRENGTH: 15 MG?END DATE: 2024
     Route: 048
     Dates: start: 20241005

REACTIONS (3)
  - Completed suicide [Fatal]
  - Malaise [Unknown]
  - Emotional distress [Unknown]

NARRATIVE: CASE EVENT DATE: 20241001
